FAERS Safety Report 6470001-0 (Version None)
Quarter: 2009Q4

REPORT INFORMATION
  Report Type: 
  Country: None (occurrence: None)
  Receive Date: 20091203
  Receipt Date: 20071101
  Transmission Date: 20100525
  Serious: Yes (Death, Other)
  Sender: FDA-Public Use
  Company Number: US-ELI_LILLY_AND_COMPANY-US200707005215

PATIENT
  Sex: Male
  Weight: 92.971 kg

DRUGS (7)
  1. ZYPREXA [Suspect]
     Indication: SCHIZOPHRENIA, PARANOID TYPE
     Dosage: 10 MG, UNK
     Dates: start: 19970201
  2. ZYPREXA [Suspect]
     Dosage: 15 MG, UNK
     Dates: start: 19980201
  3. ZYPREXA [Suspect]
     Dosage: 50 MG, UNK
  4. ZYPREXA [Suspect]
     Dosage: 15 MG, UNK
  5. ZYPREXA [Suspect]
     Dosage: 10 MG, UNK
     Dates: start: 19980301, end: 19980401
  6. PAXIL [Concomitant]
     Dates: start: 19970301
  7. HALDOL [Concomitant]
     Dates: start: 19970201

REACTIONS (6)
  - DEATH [None]
  - DIABETES MELLITUS [None]
  - DIABETIC KETOACIDOSIS [None]
  - HYPERGLYCAEMIA [None]
  - OVERDOSE [None]
  - WEIGHT INCREASED [None]
